FAERS Safety Report 14386611 (Version 3)
Quarter: 2020Q1

REPORT INFORMATION
  Report Type: Spontaneous
  Country: US (occurrence: US)
  Receive Date: 20180115
  Receipt Date: 20200109
  Transmission Date: 20200409
  Serious: Yes (Other)
  Sender: FDA-Public Use
  Company Number: US-SA-2017SA151714

PATIENT
  Age: 50 Year
  Sex: Female
  Weight: 84 kg

DRUGS (9)
  1. ADRIAMYCIN [Concomitant]
     Active Substance: DOXORUBICIN HYDROCHLORIDE
     Indication: BREAST CANCER FEMALE
     Dosage: UNK
     Dates: start: 20110106, end: 20110106
  2. TAXOTERE [Suspect]
     Active Substance: DOCETAXEL
     Dosage: 147 MG, Q3W (IVPB IN 250 ML NS OVER ONE HOUR)
     Route: 042
     Dates: start: 20110421, end: 20110421
  3. NEOSAR [Concomitant]
     Active Substance: CYCLOPHOSPHAMIDE
     Indication: BREAST CANCER FEMALE
  4. TAXOTERE [Suspect]
     Active Substance: DOCETAXEL
     Indication: BREAST CANCER FEMALE
     Dosage: 147 MG, Q3W (IVPB IN 250 ML NS OVER ONE HOUR)
     Route: 042
     Dates: start: 20110106, end: 20110106
  5. CYTOXAN [Concomitant]
     Active Substance: CYCLOPHOSPHAMIDE
     Indication: BREAST CANCER FEMALE
     Dosage: UNK
     Dates: start: 20110106, end: 20110106
  6. NEULASTA [Concomitant]
     Active Substance: PEGFILGRASTIM
  7. DEXAMETHASONE. [Concomitant]
     Active Substance: DEXAMETHASONE
     Dosage: 8 MG,BID
     Route: 048
  8. CYTOXAN [Concomitant]
     Active Substance: CYCLOPHOSPHAMIDE
     Dosage: UNK
     Dates: start: 20110421, end: 20110421
  9. ADRIAMYCIN [Concomitant]
     Active Substance: DOXORUBICIN HYDROCHLORIDE
     Dosage: UNK
     Dates: start: 20110421, end: 20110421

REACTIONS (6)
  - Impaired quality of life [Unknown]
  - Alopecia [Not Recovered/Not Resolved]
  - Psychological trauma [Unknown]
  - Anxiety [Unknown]
  - Pain [Unknown]
  - Emotional distress [Unknown]

NARRATIVE: CASE EVENT DATE: 20110206
